FAERS Safety Report 11184170 (Version 1)
Quarter: 2015Q2

REPORT INFORMATION
  Report Type: Spontaneous
  Country: US (occurrence: US)
  Receive Date: 20150612
  Receipt Date: 20150612
  Transmission Date: 20150821
  Serious: No
  Sender: FDA-Public Use
  Company Number: US-PFIZER INC-2015197162

PATIENT
  Sex: Female

DRUGS (2)
  1. GEODON [Suspect]
     Active Substance: ZIPRASIDONE HYDROCHLORIDE\ZIPRASIDONE MESYLATE
     Indication: ANXIETY
     Dosage: 20 MG, DAILY
     Dates: start: 20150604, end: 20150609
  2. GEODON [Suspect]
     Active Substance: ZIPRASIDONE HYDROCHLORIDE\ZIPRASIDONE MESYLATE
     Indication: OBSESSIVE-COMPULSIVE DISORDER

REACTIONS (6)
  - Pain [Unknown]
  - Product use issue [Unknown]
  - Insomnia [Unknown]
  - Chills [Unknown]
  - Tension [Unknown]
  - Drug ineffective [Unknown]

NARRATIVE: CASE EVENT DATE: 201506
